FAERS Safety Report 12800417 (Version 1)
Quarter: 2016Q3

REPORT INFORMATION
  Report Type: Spontaneous
  Country: US (occurrence: US)
  Receive Date: 20160930
  Receipt Date: 20160930
  Transmission Date: 20161109
  Serious: No
  Sender: FDA-Public Use
  Company Number: US-ELI_LILLY_AND_COMPANY-US201609009808

PATIENT
  Age: 77 Year
  Sex: Male

DRUGS (4)
  1. HUMALOG [Suspect]
     Active Substance: INSULIN LISPRO
     Dosage: 2 U, EACH MORNING
     Route: 065
  2. HUMALOG [Suspect]
     Active Substance: INSULIN LISPRO
     Indication: TYPE 2 DIABETES MELLITUS
     Dosage: 2 U, EACH MORNING
     Route: 065
     Dates: start: 2006
  3. HUMALOG [Suspect]
     Active Substance: INSULIN LISPRO
     Dosage: 2 U, EACH EVENING
     Route: 065
  4. HUMALOG [Suspect]
     Active Substance: INSULIN LISPRO
     Dosage: 2 U, EACH EVENING
     Route: 065
     Dates: start: 2006

REACTIONS (3)
  - Blood glucose increased [Not Recovered/Not Resolved]
  - Anxiety [Not Recovered/Not Resolved]
  - Drug ineffective [Unknown]

NARRATIVE: CASE EVENT DATE: 201609
